FAERS Safety Report 11825566 (Version 2)
Quarter: 2016Q1

REPORT INFORMATION
  Report Type: Spontaneous
  Country: US (occurrence: US)
  Receive Date: 20151211
  Receipt Date: 20160202
  Transmission Date: 20160525
  Serious: No
  Sender: FDA-Public Use
  Company Number: US-JNJFOC-20150611098

PATIENT
  Sex: Female

DRUGS (4)
  1. IMBRUVICA [Suspect]
     Active Substance: IBRUTINIB
     Indication: CHRONIC LYMPHOCYTIC LEUKAEMIA RECURRENT
     Route: 048
  2. IMBRUVICA [Suspect]
     Active Substance: IBRUTINIB
     Indication: CHRONIC LYMPHOCYTIC LEUKAEMIA RECURRENT
     Route: 048
     Dates: start: 2015
  3. IMBRUVICA [Suspect]
     Active Substance: IBRUTINIB
     Indication: CHRONIC LYMPHOCYTIC LEUKAEMIA RECURRENT
     Route: 048
     Dates: start: 20150930
  4. LEVAQUIN [Concomitant]
     Active Substance: LEVOFLOXACIN

REACTIONS (11)
  - Vitamin D decreased [Unknown]
  - Carotene increased [Unknown]
  - Blood uric acid increased [Unknown]
  - Lymphadenopathy [Unknown]
  - Platelet count decreased [Unknown]
  - Weight decreased [Unknown]
  - Splenomegaly [Unknown]
  - Malabsorption [Not Recovered/Not Resolved]
  - Steatorrhoea [Unknown]
  - Gastrointestinal disorder [Unknown]
  - Diarrhoea [Unknown]

NARRATIVE: CASE EVENT DATE: 2015
